FAERS Safety Report 9886306 (Version 2)
Quarter: 2014Q1

REPORT INFORMATION
  Report Type: Spontaneous
  Country: DE (occurrence: DE)
  Receive Date: 20140210
  Receipt Date: 20140210
  Transmission Date: 20141002
  Serious: No
  Sender: FDA-Public Use
  Company Number: PHHY2013DE147084

PATIENT
  Sex: Male
  Weight: 84 kg

DRUGS (7)
  1. TASIGNA [Suspect]
     Indication: CHRONIC MYELOID LEUKAEMIA
     Dosage: 300 MG, QD
     Route: 048
     Dates: start: 20131114
  2. TASIGNA [Suspect]
     Dosage: 300 MG, BID
     Route: 048
     Dates: start: 20131121
  3. TASIGNA [Suspect]
     Dosage: 300 MG, DAILY
     Route: 048
     Dates: start: 20131217, end: 20131230
  4. ASS [Concomitant]
     Dosage: 1 DF, DAILY (IN THE MORNING)
  5. SIMVABETA [Concomitant]
     Dosage: 1 DF, DAILY (IN THE EVENING)
  6. BISOHEXAL [Concomitant]
     Dosage: 1 DF, DAILY (IN THE MORNING)
  7. RIFUN [Concomitant]
     Dosage: 1 DF, DAILY (IN THE MORNING)

REACTIONS (4)
  - Lymph node pain [Recovered/Resolved]
  - Testicular pain [Unknown]
  - Oedema peripheral [Recovered/Resolved]
  - Weight increased [Recovered/Resolved]
